FAERS Safety Report 18298784 (Version 1)
Quarter: 2020Q3

REPORT INFORMATION
  Report Type: Report from Study
  Country: None (occurrence: US)
  Receive Date: 20200923
  Receipt Date: 20200923
  Transmission Date: 20201103
  Serious: Yes (Hospitalization)
  Sender: FDA-Public Use
  Company Number: US-ABBVIE-20K-163-3570857-00

PATIENT
  Age: 54 Year
  Sex: Female

DRUGS (1)
  1. HUMIRA [Suspect]
     Active Substance: ADALIMUMAB
     Indication: PSORIASIS
     Route: 058

REACTIONS (9)
  - Loss of consciousness [Unknown]
  - Blood pressure decreased [Unknown]
  - Allergic oedema [Unknown]
  - Ankle fracture [Unknown]
  - Fall [Unknown]
  - Dehydration [Unknown]
  - Feeling abnormal [Unknown]
  - Stress [Unknown]
  - Erythema [Unknown]

NARRATIVE: CASE EVENT DATE: 201803
